FAERS Safety Report 5592618-8 (Version None)
Quarter: 2008Q1

REPORT INFORMATION
  Report Type: 
  Country: None (occurrence: None)
  Receive Date: 20080114
  Receipt Date: 20080102
  Transmission Date: 20080703
  Serious: Yes (Death, Hospitalization)
  Sender: FDA-Public Use
  Company Number: 2008AL000043

PATIENT
  Age: 36 Year
  Sex: Female
  Weight: 61.2356 kg

DRUGS (10)
  1. METOCLOPRAMIDE [Suspect]
     Indication: MENTAL DISORDER
     Dosage: PO
     Route: 048
  2. METOCLOPRAMIDE [Suspect]
     Indication: NERVOUS SYSTEM DISORDER
     Dosage: PO
     Route: 048
  3. VALPROIC ACID [Concomitant]
  4. GABAPENTIN [Concomitant]
  5. CLONAZEPAM [Concomitant]
  6. PHENYTOIN [Concomitant]
  7. CARBAZEPINE [Concomitant]
  8. KEPPRA [Concomitant]
  9. PRIMIDONE [Concomitant]
  10. VENLAFAXINE HCL [Concomitant]

REACTIONS (28)
  - ANAEMIA [None]
  - CARDIOMYOPATHY [None]
  - CATATONIA [None]
  - CEREBRAL HAEMORRHAGE [None]
  - CHOLESTASIS [None]
  - CLOSTRIDIUM DIFFICILE COLITIS [None]
  - COMMUNICATION DISORDER [None]
  - CONTUSION [None]
  - EYES SUNKEN [None]
  - GLIOSIS [None]
  - HEPATIC CONGESTION [None]
  - HEPATIC ISCHAEMIA [None]
  - HEPATIC NECROSIS [None]
  - HEPATIC STEATOSIS [None]
  - INJURY [None]
  - MENTAL STATUS CHANGES [None]
  - MUCOSAL EROSION [None]
  - NEUROLEPTIC MALIGNANT SYNDROME [None]
  - ORAL INTAKE REDUCED [None]
  - PNEUMONIA [None]
  - PROCTITIS [None]
  - PULMONARY OEDEMA [None]
  - RENAL FAILURE ACUTE [None]
  - RENAL TUBULAR NECROSIS [None]
  - RHABDOMYOLYSIS [None]
  - SKIN DISCOLOURATION [None]
  - TELANGIECTASIA [None]
  - UNRESPONSIVE TO STIMULI [None]
